FAERS Safety Report 17240598 (Version 1)
Quarter: 2020Q1

REPORT INFORMATION
  Report Type: Spontaneous
  Country: NL (occurrence: NL)
  Receive Date: 20200107
  Receipt Date: 20200107
  Transmission Date: 20200409
  Serious: Yes (Hospitalization)
  Sender: FDA-Public Use
  Company Number: NL-TEVA-2019-NL-1161816

PATIENT
  Sex: Female
  Weight: 49 kg

DRUGS (9)
  1. MONTELUKAST TABLET OMHULD 10MG [Concomitant]
     Active Substance: MONTELUKAST SODIUM
  2. MOMETASON NEUSSPRAY 50UG/DO FL 140DO [Concomitant]
     Dosage: 50UG / DO FL 140DO
  3. RISEDRONINEZUUR TABLET FO 35MG [Concomitant]
  4. PREDNISOLON TABLET 5MG [Concomitant]
     Active Substance: PREDNISOLONE
  5. OXAZEPAM TABLET 10MG [Concomitant]
  6. CALCIUMCARB/COLECALC KAUWTB 1,25G/400IE (500MG CA) [Concomitant]
     Dosage: 1,25G / 400IE (500MG CA)
  7. MELOXICAM TABLET 15MG [Concomitant]
  8. GLATIRAMEER INJECTIEVLOEISTOF, 40 MG/ML (MILLIGRAM PER MILLILITER) [Suspect]
     Active Substance: GLATIRAMER ACETATE
     Indication: MULTIPLE SCLEROSIS
     Dosage: 1 DF 3X PER WEEK
     Dates: start: 20191009, end: 20191015
  9. PANTOPRAZOL TABLET MSR 40MG [Concomitant]
     Active Substance: PANTOPRAZOLE SODIUM

REACTIONS (6)
  - Pyrexia [Unknown]
  - Hypertension [Unknown]
  - Decreased appetite [Unknown]
  - Palpitations [Unknown]
  - Nausea [Unknown]
  - Hospitalisation [Unknown]
